FAERS Safety Report 7767657 (Version 9)
Quarter: 2013Q1

REPORT INFORMATION
  Report Type: Spontaneous
  Country: US (occurrence: US)
  Receive Date: 20110120
  Receipt Date: 20130225
  Transmission Date: 20140127
  Serious: Yes (Hospitalization, Other)
  Sender: FDA-Public Use
  Company Number: US-ASTRAZENECA-2011SE01707

PATIENT
  Age: 56 Year
  Sex: Female

DRUGS (5)
  1. NEXIUM [Suspect]
     Indication: GASTROOESOPHAGEAL REFLUX DISEASE
     Route: 048
  2. TOPROL XL [Suspect]
     Indication: CARDIAC DISORDER
     Route: 048
  3. CRESTOR [Suspect]
     Indication: MYOCARDIAL INFARCTION
     Route: 048
  4. PREDNISONE [Concomitant]
  5. LONG LIST OF MEDICATION [Concomitant]

REACTIONS (18)
  - Myocardial infarction [Unknown]
  - Road traffic accident [Unknown]
  - Tooth disorder [Unknown]
  - Bronchitis [Unknown]
  - Pneumonia [Unknown]
  - Aphagia [Unknown]
  - Gastrooesophageal reflux disease [Unknown]
  - Malaise [Unknown]
  - Stress [Unknown]
  - Fatigue [Unknown]
  - Musculoskeletal stiffness [Unknown]
  - Nerve compression [Unknown]
  - Gastric disorder [Unknown]
  - Nasopharyngitis [Unknown]
  - Influenza [Unknown]
  - Pain in extremity [Unknown]
  - Drug dose omission [Unknown]
  - Drug ineffective [Unknown]
